FAERS Safety Report 4304888-4 (Version None)
Quarter: 2004Q1

REPORT INFORMATION
  Report Type: 
  Country: None (occurrence: None)
  Receive Date: 20040226
  Receipt Date: 20040106
  Transmission Date: 20041129
  Serious: No
  Sender: FDA-Public Use
  Company Number: US-GLAXOSMITHKLINE-A0491745A

PATIENT
  Sex: Female

DRUGS (3)
  1. WELLBUTRIN [Suspect]
     Dosage: 150MG PER DAY
     Route: 048
  2. CLARINEX [Concomitant]
  3. COPAXONE [Concomitant]

REACTIONS (2)
  - FOREIGN BODY TRAUMA [None]
  - INSOMNIA [None]
